FAERS Safety Report 11191565 (Version 1)
Quarter: 2015Q2

REPORT INFORMATION
  Report Type: Spontaneous
  Country: FR (occurrence: FR)
  Receive Date: 20150616
  Receipt Date: 20150616
  Transmission Date: 20150821
  Serious: Yes (Hospitalization, Other)
  Sender: FDA-Public Use
  Company Number: PHHY2015FR068666

PATIENT
  Age: 53 Year
  Sex: Male

DRUGS (2)
  1. MYCOPHENOLATE MOFETIL. [Suspect]
     Active Substance: MYCOPHENOLATE MOFETIL
     Indication: IMMUNOSUPPRESSANT DRUG THERAPY
     Route: 065
  2. CICLOSPORIN HEXAL [Suspect]
     Active Substance: CYCLOSPORINE
     Indication: IMMUNOSUPPRESSANT DRUG THERAPY
     Route: 065

REACTIONS (7)
  - Aphasia [Recovering/Resolving]
  - Condition aggravated [Recovering/Resolving]
  - Meningitis aseptic [Recovering/Resolving]
  - Acute disseminated encephalomyelitis [Recovering/Resolving]
  - Irritability [Recovering/Resolving]
  - VIIth nerve paralysis [Recovering/Resolving]
  - Confusional state [Recovering/Resolving]
